FAERS Safety Report 6490946-5 (Version None)
Quarter: 2009Q4

REPORT INFORMATION
  Report Type: 
  Country: None (occurrence: None)
  Receive Date: 20091211
  Receipt Date: 20090615
  Transmission Date: 20100525
  Serious: No
  Sender: FDA-Public Use
  Company Number: US-TYCO HEALTHCARE/MALLINCKRODT-T200901210

PATIENT
  Age: 53 Year
  Sex: Male

DRUGS (1)
  1. METHYLIN [Suspect]
     Indication: NARCOLEPSY
     Dosage: 5 MG, (1/2 TAB) BID (AM PM)
     Route: 048
     Dates: start: 20070101, end: 20080101

REACTIONS (5)
  - ANXIETY [None]
  - DELUSION [None]
  - FEELING ABNORMAL [None]
  - HYPERHIDROSIS [None]
  - INSOMNIA [None]
